FAERS Safety Report 8921035 (Version 1)
Quarter: 2012Q4

REPORT INFORMATION
  Report Type: Report from Study
  Country: DE (occurrence: DE)
  Receive Date: 20121121
  Receipt Date: 20121121
  Transmission Date: 20130627
  Serious: Yes (Hospitalization)
  Sender: FDA-Public Use
  Company Number: DE-SANOFI-AVENTIS-2012SA085173

PATIENT
  Age: 78 Year
  Sex: Male
  Weight: 103 kg

DRUGS (4)
  1. MULTAQ [Suspect]
     Indication: PERSISTENT ATRIAL FIBRILLATION
     Dosage: Unit cont:400
     Route: 048
     Dates: start: 20120705, end: 20120914
  2. VALSARTAN [Concomitant]
  3. BETA BLOCKING AGENTS [Concomitant]
     Indication: PERSISTENT ATRIAL FIBRILLATION
  4. FACTOR II (PROTHROMBIN) [Concomitant]

REACTIONS (4)
  - Atrial fibrillation [Recovered/Resolved]
  - Dyspnoea [Recovered/Resolved]
  - Hypothyroidism [Not Recovered/Not Resolved]
  - Blood thyroid stimulating hormone increased [Not Recovered/Not Resolved]
